FAERS Safety Report 6836942-7 (Version None)
Quarter: 2010Q3

REPORT INFORMATION
  Report Type: 
  Country: None (occurrence: None)
  Receive Date: 20100713
  Receipt Date: 20070426
  Transmission Date: 20110219
  Serious: Yes (Other)
  Sender: FDA-Public Use
  Company Number: US-PFIZER INC-2007034927

PATIENT
  Sex: Female
  Weight: 60.909 kg

DRUGS (6)
  1. CHANTIX [Suspect]
     Indication: SMOKING CESSATION THERAPY
     Dates: start: 20070411, end: 20070417
  2. VICODIN [Concomitant]
  3. PAXIL [Concomitant]
  4. ZANAFLEX [Concomitant]
  5. VITAMIN B-12 [Concomitant]
  6. SYNTHROID [Concomitant]

REACTIONS (7)
  - CARDIAC FLUTTER [None]
  - DIARRHOEA [None]
  - DYSPEPSIA [None]
  - INSOMNIA [None]
  - MUSCULOSKELETAL PAIN [None]
  - NAUSEA [None]
  - TREMOR [None]
